FAERS Safety Report 6123406-1 (Version None)
Quarter: 2009Q1

REPORT INFORMATION
  Report Type: 
  Country: None (occurrence: None)
  Receive Date: 20090318
  Receipt Date: 20090306
  Transmission Date: 20090719
  Serious: Yes (Hospitalization)
  Sender: FDA-Public Use
  Company Number: JP-PFIZER INC-2009154800

PATIENT

DRUGS (2)
  1. CARDENALIN [Suspect]
     Dosage: 2 MG, 1X/DAY
     Route: 048
     Dates: start: 20080101, end: 20081205
  2. NU LOTAN [Concomitant]
     Dosage: UNK

REACTIONS (3)
  - FOLATE DEFICIENCY [None]
  - PANCYTOPENIA [None]
  - VITAMIN B12 DEFICIENCY [None]
